FAERS Safety Report 6491814-5 (Version None)
Quarter: 2009Q4

REPORT INFORMATION
  Report Type: 
  Country: None (occurrence: None)
  Receive Date: 20091210
  Receipt Date: 20091123
  Transmission Date: 20100525
  Serious: Yes (Other)
  Sender: FDA-Public Use
  Company Number: AUR-APL-2009-01500

PATIENT
  Age: 82 Year
  Sex: Female
  Weight: 71.7 kg

DRUGS (5)
  1. SIMVASTATIN [Suspect]
     Dates: end: 20091023
  2. LISINOPRIL [Concomitant]
  3. METOPROLOL TARTRATE [Concomitant]
  4. HYDROCHLOROTHIAZIDE [Concomitant]
  5. NIFEDIPINE [Concomitant]

REACTIONS (2)
  - ABASIA [None]
  - BACK PAIN [None]
